FAERS Safety Report 23123899 (Version 5)
Quarter: 2023Q4

REPORT INFORMATION
  Report Type: Report from Study
  Country: IE (occurrence: IE)
  Receive Date: 20231030
  Receipt Date: 20231208
  Transmission Date: 20240109
  Serious: Yes (Death, Hospitalization, Other)
  Sender: FDA-Public Use
  Company Number: IE-002147023-NVSC2023IE138881

PATIENT
  Age: 61 Year
  Sex: Female

DRUGS (4)
  1. KISQALI [Suspect]
     Active Substance: RIBOCICLIB
     Indication: Breast cancer metastatic
     Dosage: 600 MG, QD
     Route: 048
  2. KISQALI [Suspect]
     Active Substance: RIBOCICLIB
     Dosage: 600 MG, QD
     Route: 048
     Dates: start: 20230919
  3. KISQALI [Suspect]
     Active Substance: RIBOCICLIB
     Dosage: 600 MG, QD
     Route: 048
     Dates: start: 20231010
  4. KISQALI [Suspect]
     Active Substance: RIBOCICLIB
     Dosage: 600 MG, QD
     Route: 048
     Dates: end: 20231127

REACTIONS (12)
  - Death [Fatal]
  - Liver function test increased [Unknown]
  - Abdominal pain [Recovered/Resolved]
  - Vomiting [Unknown]
  - Abdominal distension [Unknown]
  - Ocular icterus [Unknown]
  - Yellow skin [Unknown]
  - Faeces discoloured [Unknown]
  - Taste disorder [Unknown]
  - Fatigue [Unknown]
  - Decreased appetite [Unknown]
  - Nausea [Recovered/Resolved]
